FAERS Safety Report 12713587 (Version 6)
Quarter: 2017Q1

REPORT INFORMATION
  Report Type: Spontaneous
  Country: US (occurrence: US)
  Receive Date: 20160903
  Receipt Date: 20170310
  Transmission Date: 20170428
  Serious: Yes (Other)
  Sender: FDA-Public Use
  Company Number: PHEH2016US022180

PATIENT
  Age: 19 Year
  Sex: Female
  Weight: 70.3 kg

DRUGS (2)
  1. ZOFRAN ODT [Suspect]
     Active Substance: ONDANSETRON HYDROCHLORIDE
     Indication: VOMITING IN PREGNANCY
     Dosage: 8 MG, BID
     Route: 048
     Dates: start: 20140129, end: 20140210
  2. ZOFRAN [Suspect]
     Active Substance: ONDANSETRON HYDROCHLORIDE
     Indication: VOMITING IN PREGNANCY
     Route: 042
     Dates: start: 20140129, end: 20140210

REACTIONS (11)
  - Migraine [Unknown]
  - Pruritus [Unknown]
  - Respiratory depression [Unknown]
  - Vaginal haemorrhage [Unknown]
  - Depression [Unknown]
  - Urinary retention [Unknown]
  - Emotional distress [Unknown]
  - Constipation [Unknown]
  - Product use issue [Unknown]
  - Maternal exposure during pregnancy [Unknown]
  - Headache [Unknown]

NARRATIVE: CASE EVENT DATE: 20140210
